FAERS Safety Report 4850656-4 (Version None)
Quarter: 2005Q4

REPORT INFORMATION
  Report Type: 
  Country: None (occurrence: None)
  Receive Date: 20051212
  Receipt Date: 20050504
  Transmission Date: 20060501
  Serious: No
  Sender: FDA-Public Use
  Company Number: US-BRISTOL-MYERS SQUIBB COMPANY-12956439

PATIENT
  Sex: Male

DRUGS (4)
  1. CHOLESTYRAMINE [Suspect]
  2. REMICADE [Suspect]
  3. IMODIUM [Suspect]
  4. PENTASA [Suspect]

REACTIONS (1)
  - LIVER DISORDER [None]
